FAERS Safety Report 10215713 (Version 1)
Quarter: 2014Q2

REPORT INFORMATION
  Report Type: Spontaneous
  Country: US (occurrence: None)
  Receive Date: 20140602
  Receipt Date: 20140602
  Transmission Date: 20141212
  Serious: Yes (Death, Hospitalization)
  Sender: FDA-Public Use
  Company Number: US-JNFOC-20140515221

PATIENT
  Age: 70 Year
  Sex: Male
  Weight: 124.7 kg

DRUGS (2)
  1. DECITABINE [Suspect]
     Indication: ACUTE MYELOID LEUKAEMIA
     Route: 042
     Dates: start: 20130115, end: 20130118
  2. VELCADE [Suspect]
     Indication: ACUTE MYELOID LEUKAEMIA
     Route: 042
     Dates: start: 20130110, end: 20130117

REACTIONS (8)
  - Cellulitis [None]
  - Gastrointestinal haemorrhage [None]
  - Blood creatinine increased [None]
  - Respiratory distress [None]
  - Atrial fibrillation [None]
  - Pulmonary oedema [None]
  - Respiratory failure [None]
  - Cardiac arrest [None]
